FAERS Safety Report 19648114 (Version 1)
Quarter: 2021Q3

REPORT INFORMATION
  Report Type: Other
  Country: HR (occurrence: HR)
  Receive Date: 20210802
  Receipt Date: 20210802
  Transmission Date: 20211014
  Serious: Yes (Death, Hospitalization)
  Sender: FDA-Public Use
  Company Number: HR-ROCHE-2859240

PATIENT
  Age: 80 Year
  Sex: Male
  Weight: 74 kg

DRUGS (12)
  1. GLOFITAMAB. [Suspect]
     Active Substance: GLOFITAMAB
     Indication: NON-HODGKIN^S LYMPHOMA
  2. OBINUTUZUMAB. [Suspect]
     Active Substance: OBINUTUZUMAB
     Indication: NON-HODGKIN^S LYMPHOMA
     Route: 042
  3. ANDOL (CROATIA) [Concomitant]
     Dosage: DOSE 100 UNIT NOT REPORTED
     Route: 048
  4. ATORVASTATIN [Concomitant]
     Active Substance: ATORVASTATIN
  5. GLOFITAMAB. [Suspect]
     Active Substance: GLOFITAMAB
     Indication: DIFFUSE LARGE B-CELL LYMPHOMA
     Route: 065
     Dates: start: 20210617
  6. ACYCLOVIR. [Concomitant]
     Active Substance: ACYCLOVIR
  7. NEBIVOLOL. [Concomitant]
     Active Substance: NEBIVOLOL
     Indication: HYPERTENSION
     Dosage: A5 MG 1/4 TBL
     Route: 048
  8. HERPLEX (CROATIA) [Concomitant]
     Route: 048
  9. FLUCONAZOLE. [Concomitant]
     Active Substance: FLUCONAZOLE
  10. OBINUTUZUMAB. [Suspect]
     Active Substance: OBINUTUZUMAB
     Indication: DIFFUSE LARGE B-CELL LYMPHOMA
  11. SULFAMETHOXAZOLE/TRIMETHOPRIM [Concomitant]
     Active Substance: SULFAMETHOXAZOLE\TRIMETHOPRIM
     Dosage: 800/160 MG
     Route: 048
  12. COVID?19 VACCINE [Concomitant]
     Indication: COVID-19

REACTIONS (4)
  - Tumour flare [Not Recovered/Not Resolved]
  - Sepsis [Recovered/Resolved]
  - Neutropenia [Recovered/Resolved]
  - COVID-19 [Fatal]

NARRATIVE: CASE EVENT DATE: 20210623
